FAERS Safety Report 11317125 (Version 1)
Quarter: 2015Q3

REPORT INFORMATION
  Report Type: Spontaneous
  Country: US (occurrence: None)
  Receive Date: 20150727
  Receipt Date: 20150727
  Transmission Date: 20151125
  Serious: No
  Sender: FDA-Public Use
  Company Number: None

PATIENT

DRUGS (2)
  1. BD 5 ML SYRINGE-LEUR-LOK TIP WITH BLUNT FILL NEEDLE [Concomitant]
  2. KETAMINE [Suspect]
     Active Substance: KETAMINE

REACTIONS (1)
  - Syringe issue [None]

NARRATIVE: CASE EVENT DATE: 20150704
